FAERS Safety Report 7439461-2 (Version None)
Quarter: 2011Q2

REPORT INFORMATION
  Report Type: 
  Country: None (occurrence: None)
  Receive Date: 20110427
  Receipt Date: 20110413
  Transmission Date: 20111010
  Serious: Yes (Death)
  Sender: FDA-Public Use
  Company Number: AU-TYCO HEALTHCARE/MALLINCKRODT-T201100828

PATIENT
  Sex: Male

DRUGS (2)
  1. EXALGO [Suspect]
     Indication: CANCER PAIN
     Dosage: 4 MG
     Route: 048
  2. EXALGO [Suspect]
     Dosage: 4 MG TABLETS, TWO IN ONE DAY
     Route: 048

REACTIONS (2)
  - DRUG INEFFECTIVE [None]
  - DEATH [None]
